FAERS Safety Report 24170583 (Version 1)
Quarter: 2024Q3

REPORT INFORMATION
  Report Type: Spontaneous
  Country: CH (occurrence: CH)
  Receive Date: 20240803
  Receipt Date: 20240803
  Transmission Date: 20241017
  Serious: Yes (Hospitalization)
  Sender: TEVA
  Company Number: None

PATIENT
  Age: 68 Year
  Sex: Female

DRUGS (4)
  1. IBUPROFEN [Suspect]
     Active Substance: IBUPROFEN
     Indication: Product used for unknown indication
     Dosage: TIME INTERVAL: TOTAL: 14 DF
     Route: 048
     Dates: start: 20240615, end: 20240615
  2. IMOVANE [Suspect]
     Active Substance: ZOPICLONE
     Indication: Product used for unknown indication
     Dosage: TIME INTERVAL: TOTAL: 15 DF
     Route: 048
     Dates: start: 20240615, end: 20240615
  3. IMOVANE [Suspect]
     Active Substance: ZOPICLONE
     Indication: Product used for unknown indication
     Dosage: HOME TREATMENT: 15 MG AT BEDTIME
     Route: 065
  4. DAFALGAN [Suspect]
     Active Substance: ACETAMINOPHEN
     Indication: Product used for unknown indication
     Dosage: TIME INTERVAL: TOTAL: 15 DF
     Route: 048
     Dates: start: 20240615, end: 20240615

REACTIONS (3)
  - Hepatocellular injury [Recovering/Resolving]
  - Intentional overdose [Recovered/Resolved]
  - Acute kidney injury [Recovered/Resolved]

NARRATIVE: CASE EVENT DATE: 20240615
